FAERS Safety Report 8213301-6 (Version None)
Quarter: 2012Q1

REPORT INFORMATION
  Report Type: 
  Country: None (occurrence: None)
  Receive Date: 20120315
  Receipt Date: 20120309
  Transmission Date: 20120608
  Serious: Yes (Hospitalization)
  Sender: FDA-Public Use
  Company Number: PHHO2012BR002037

PATIENT
  Sex: Male
  Weight: 79 kg

DRUGS (4)
  1. THYMOGLOBULIN [Concomitant]
     Indication: RENAL TRANSPLANT
     Dosage: 250 MG, ONCE/SINGLE
     Route: 042
     Dates: start: 20120103
  2. CERTICAN [Suspect]
     Indication: RENAL TRANSPLANT
     Dosage: 3 MG, BID
     Route: 048
     Dates: start: 20120103
  3. PREDNISONE TAB [Suspect]
  4. TACROLIMUS [Suspect]
     Indication: RENAL TRANSPLANT

REACTIONS (5)
  - URINARY TRACT INFECTION BACTERIAL [None]
  - PYREXIA [None]
  - LYMPHOCELE [None]
  - ATRIAL FIBRILLATION [None]
  - URINARY FISTULA [None]
